FAERS Safety Report 21714727 (Version 1)
Quarter: 2022Q4

REPORT INFORMATION
  Report Type: Spontaneous
  Country: US (occurrence: None)
  Receive Date: 20221210
  Receipt Date: 20221210
  Transmission Date: 20230113
  Serious: No
  Sender: FDA-Public Use
  Company Number: None

PATIENT
  Age: 35 Month
  Sex: Male
  Weight: 13.5 kg

DRUGS (3)
  1. DUPIXENT [Suspect]
     Active Substance: DUPILUMAB
     Indication: Eczema
     Dosage: OTHER FREQUENCY : ONCE PER MONTH;?
     Route: 030
     Dates: start: 20220907
  2. DUPIXENT [Concomitant]
  3. VITAMINS [Concomitant]
     Active Substance: VITAMINS

REACTIONS (2)
  - Onychoclasis [None]
  - Onychoclasis [None]

NARRATIVE: CASE EVENT DATE: 20221210
